FAERS Safety Report 4791554-4 (Version None)
Quarter: 2005Q4

REPORT INFORMATION
  Report Type: 
  Country: None (occurrence: None)
  Receive Date: 20051007
  Receipt Date: 20050301
  Transmission Date: 20060501
  Serious: No
  Sender: FDA-Public Use
  Company Number: US-BRISTOL-MYERS SQUIBB COMPANY-12882320

PATIENT
  Age: 83 Year
  Sex: Female
  Weight: 65 kg

DRUGS (6)
  1. AVAPRO [Suspect]
     Route: 048
     Dates: start: 20041201, end: 20050101
  2. TIMOLOL MALEATE [Concomitant]
  3. BENICAR [Concomitant]
  4. LOVASTATIN [Concomitant]
  5. ACIPHEX [Concomitant]
  6. BETAXOLOL [Concomitant]
     Route: 047

REACTIONS (1)
  - DYSGEUSIA [None]
